FAERS Safety Report 18963548 (Version 1)
Quarter: 2021Q1

REPORT INFORMATION
  Report Type: Spontaneous
  Country: US (occurrence: US)
  Receive Date: 20210303
  Receipt Date: 20210303
  Transmission Date: 20210420
  Serious: Yes (Death, Hospitalization, Disabling)
  Sender: FDA-Public Use
  Company Number: None

PATIENT
  Age: 76 Year
  Sex: Female
  Weight: 90 kg

DRUGS (1)
  1. IBRANCE [Suspect]
     Active Substance: PALBOCICLIB
     Route: 048

REACTIONS (7)
  - Cough [None]
  - Hepatic enzyme increased [None]
  - Asthenia [None]
  - Dysstasia [None]
  - Peripheral swelling [None]
  - Wheelchair user [None]
  - Dyspnoea [None]

NARRATIVE: CASE EVENT DATE: 20200914
